FAERS Safety Report 16991774 (Version 1)
Quarter: 2019Q4

REPORT INFORMATION
  Report Type: Spontaneous
  Country: US (occurrence: US)
  Receive Date: 20190920
  Receipt Date: 20190920
  Transmission Date: 20200122
  Serious: Yes (Hospitalization)
  Sender: FDA-Public Use
  Company Number: None

PATIENT
  Age: 58 Year
  Sex: Male

DRUGS (1)
  1. CLONAZEPAM. [Suspect]
     Active Substance: CLONAZEPAM
     Indication: GENERALISED ANXIETY DISORDER
     Route: 048
     Dates: start: 20190215

REACTIONS (4)
  - Physical deconditioning [None]
  - Dehydration [None]
  - Syncope [None]
  - Mental status changes [None]

NARRATIVE: CASE EVENT DATE: 20190728
